FAERS Safety Report 14805946 (Version 2)
Quarter: 2018Q2

REPORT INFORMATION
  Report Type: Report from Study
  Country: CA (occurrence: CA)
  Receive Date: 20180425
  Receipt Date: 20180427
  Transmission Date: 20180711
  Serious: Yes (Hospitalization)
  Sender: FDA-Public Use
  Company Number: CA-JNJFOC-20180223905

PATIENT
  Age: 76 Year
  Sex: Female
  Weight: 63.41 kg

DRUGS (1)
  1. STELARA [Suspect]
     Active Substance: USTEKINUMAB
     Indication: PSORIASIS
     Route: 058
     Dates: start: 201107

REACTIONS (2)
  - Subarachnoid haemorrhage [Not Recovered/Not Resolved]
  - Reversible cerebral vasoconstriction syndrome [Not Recovered/Not Resolved]

NARRATIVE: CASE EVENT DATE: 20180128
